FAERS Safety Report 7655648-8 (Version None)
Quarter: 2011Q3

REPORT INFORMATION
  Report Type: 
  Country: None (occurrence: None)
  Receive Date: 20110804
  Receipt Date: 20110729
  Transmission Date: 20111222
  Serious: Yes (Death)
  Sender: FDA-Public Use
  Company Number: JP-CELGENEUS-087-C5013-11073258

PATIENT
  Sex: Female

DRUGS (2)
  1. LENALIDOMIDE [Suspect]
     Dosage: 35 MILLIGRAM
     Route: 065
     Dates: start: 20110720, end: 20110720
  2. LENALIDOMIDE [Suspect]
     Indication: T-CELL LYMPHOMA
     Dosage: 35 MILLIGRAM
     Route: 065
     Dates: start: 20110627

REACTIONS (1)
  - SEPSIS [None]
